FAERS Safety Report 23539849 (Version 1)
Quarter: 2024Q1

REPORT INFORMATION
  Report Type: Spontaneous
  Country: SY (occurrence: None)
  Receive Date: 20240219
  Receipt Date: 20240219
  Transmission Date: 20240410
  Serious: Yes (Other)
  Sender: FDA-Public Use
  Company Number: 2024A041574

PATIENT
  Age: 27 Year
  Sex: Female
  Weight: 44 kg

DRUGS (2)
  1. ESOMEPRAZOLE [Suspect]
     Active Substance: ESOMEPRAZOLE
     Indication: Product used for unknown indication
     Dosage: UNK
  2. ONDANSETRON [Concomitant]
     Active Substance: ONDANSETRON
     Indication: Product used for unknown indication
     Dosage: UNK

REACTIONS (13)
  - Adenocarcinoma gastric [Unknown]
  - Ascites [Unknown]
  - Fatigue [Unknown]
  - Decreased appetite [Unknown]
  - Abdominal pain [Unknown]
  - Condition aggravated [Unknown]
  - Vomiting [Unknown]
  - Weight decreased [Unknown]
  - Nodule [Unknown]
  - Ulcer [Unknown]
  - Erythema [Unknown]
  - Gastrointestinal wall thickening [Unknown]
  - Helicobacter infection [Unknown]
